FAERS Safety Report 7019987-6 (Version None)
Quarter: 2010Q3

REPORT INFORMATION
  Report Type: 
  Country: None (occurrence: None)
  Receive Date: 20100929
  Receipt Date: 20100917
  Transmission Date: 20110219
  Serious: Yes (Other)
  Sender: FDA-Public Use
  Company Number: CA-JNJFOC-20100906810

PATIENT
  Sex: Male
  Weight: 84 kg

DRUGS (1)
  1. REMICADE [Suspect]
     Indication: COLITIS ULCERATIVE
     Route: 042

REACTIONS (5)
  - HYPOAESTHESIA ORAL [None]
  - INFUSION RELATED REACTION [None]
  - LIP SWELLING [None]
  - RASH [None]
  - SWELLING FACE [None]
